FAERS Safety Report 10184741 (Version 2)
Quarter: 2014Q2

REPORT INFORMATION
  Report Type: Spontaneous
  Country: US (occurrence: US)
  Receive Date: 20140521
  Receipt Date: 20140613
  Transmission Date: 20141212
  Serious: No
  Sender: FDA-Public Use
  Company Number: US-JNJFOC-20140504480

PATIENT
  Age: 32 Year
  Sex: Female
  Weight: 102.51 kg

DRUGS (12)
  1. DURAGESIC [Suspect]
     Indication: RHEUMATOID ARTHRITIS
     Route: 062
     Dates: start: 201310, end: 201311
  2. DURAGESIC [Suspect]
     Indication: RHEUMATOID ARTHRITIS
     Route: 062
     Dates: start: 201405
  3. DURAGESIC [Suspect]
     Indication: RHEUMATOID ARTHRITIS
     Route: 062
     Dates: start: 201311, end: 201405
  4. DURAGESIC [Suspect]
     Indication: PAIN
     Route: 062
     Dates: start: 201310, end: 201311
  5. DURAGESIC [Suspect]
     Indication: PAIN
     Route: 062
     Dates: start: 201311, end: 201405
  6. DURAGESIC [Suspect]
     Indication: PAIN
     Route: 062
     Dates: start: 201405
  7. ENBREL [Concomitant]
     Indication: RHEUMATOID ARTHRITIS
     Route: 058
     Dates: start: 2012
  8. METHOTREXATE [Concomitant]
     Indication: RHEUMATOID ARTHRITIS
     Dosage: STRENGTH : 2.5 MG
     Route: 048
     Dates: start: 2012
  9. HYDROCODONE [Concomitant]
     Indication: PAIN
     Route: 048
     Dates: start: 201310
  10. CYMBALTA [Concomitant]
     Indication: DEPRESSION
     Route: 048
     Dates: start: 201404
  11. IBUPROFEN [Concomitant]
     Indication: PAIN
     Route: 048
     Dates: start: 201310
  12. FOLIC ACID [Concomitant]
     Indication: RHEUMATOID ARTHRITIS
     Route: 048
     Dates: start: 201310

REACTIONS (4)
  - Drug ineffective [Unknown]
  - Wrong technique in drug usage process [Not Recovered/Not Resolved]
  - Product adhesion issue [Not Recovered/Not Resolved]
  - Product quality issue [Unknown]
